FAERS Safety Report 20181977 (Version 1)
Quarter: 2021Q4

REPORT INFORMATION
  Report Type: Spontaneous
  Country: ES (occurrence: ES)
  Receive Date: 20211214
  Receipt Date: 20211214
  Transmission Date: 20220303
  Serious: Yes (Hospitalization)
  Sender: FDA-Public Use
  Company Number: None

PATIENT
  Age: 86 Year
  Sex: Female

DRUGS (7)
  1. DOXAZOSIN MESYLATE [Suspect]
     Active Substance: DOXAZOSIN MESYLATE
     Dosage: DOXAZOSINE RATIOPHARM 4 MG TABLETS, 28 TABLETS, 4 MG
     Route: 048
     Dates: start: 20211108, end: 20211115
  2. DOXAZOSIN MESYLATE [Suspect]
     Active Substance: DOXAZOSIN MESYLATE
     Dosage: 2 MG
     Route: 048
     Dates: start: 20211115, end: 20211123
  3. OMEPRAZOL RATIO [Concomitant]
     Dosage: 20 MG, OMEPRAZOLE RATIO 20 MG GASTRORE-RESISTANT HARD CAPSULES, 28 CAPSULES
     Route: 048
     Dates: start: 20210429
  4. LINAGLIPTIN [Concomitant]
     Active Substance: LINAGLIPTIN
     Dosage: 5 MG, TRAJENTA 5 MG FILM-COATED TABLETS, 30 TABLETS
     Route: 048
     Dates: start: 20210618
  5. ALLOPURINOL [Concomitant]
     Active Substance: ALLOPURINOL
     Dosage: 100 MG, ALOPURINOL NORMON 100 MG TABLETS, 100 TABLETS
     Route: 048
     Dates: start: 20120423
  6. MANIDIPINE CINFA [Concomitant]
     Dosage: 20 MG, MANIDIPINE CINFA 20 MG TABLETS, 28 TABLETS
     Route: 048
     Dates: start: 20210708
  7. GLIMEPIRIDE [Concomitant]
     Active Substance: GLIMEPIRIDE
     Dosage: 4 MG, GLIMEPIRIDE MABO 2 MG TABLETS, 120 TABLETS
     Route: 048
     Dates: start: 20170329

REACTIONS (1)
  - Hyperglycaemia [Recovering/Resolving]

NARRATIVE: CASE EVENT DATE: 20211108
